FAERS Safety Report 14684326 (Version 2)
Quarter: 2023Q1

REPORT INFORMATION
  Report Type: Spontaneous
  Country: PL (occurrence: PL)
  Receive Date: 20180327
  Receipt Date: 20230324
  Transmission Date: 20230417
  Serious: Yes (Life-Threatening, Hospitalization, Disabling, Other)
  Sender: FDA-Public Use
  Company Number: PL-GLENMARK PHARMACEUTICALS-2017GMK028495

PATIENT
  Sex: Female

DRUGS (24)
  1. ESCITALOPRAM [Suspect]
     Active Substance: ESCITALOPRAM OXALATE
     Indication: Affective disorder
     Dosage: 10 MILLIGRAM 10 MG, HS
     Route: 048
  2. ESCITALOPRAM [Suspect]
     Active Substance: ESCITALOPRAM OXALATE
     Indication: Depression
     Dosage: UNK
     Route: 065
  3. ESCITALOPRAM [Suspect]
     Active Substance: ESCITALOPRAM OXALATE
     Indication: Affective disorder
  4. ESCITALOPRAM [Suspect]
     Active Substance: ESCITALOPRAM OXALATE
     Indication: Insomnia
  5. ZOLPIDEM [Suspect]
     Active Substance: ZOLPIDEM TARTRATE
     Indication: Depression
     Dosage: 10 MILLIGRAM, QD
     Route: 048
  6. ZOLPIDEM [Suspect]
     Active Substance: ZOLPIDEM TARTRATE
     Indication: Depressed mood
  7. CLARITHROMYCIN [Suspect]
     Active Substance: CLARITHROMYCIN
     Indication: Tinnitus
     Dosage: (BEDTIME), TWO, 10-DAY TREATMENT CYCLES COURSES
     Route: 048
  8. DOXEPIN [Suspect]
     Active Substance: DOXEPIN
     Indication: Affective disorder
     Dosage: UNK
     Route: 065
  9. DOXEPIN [Suspect]
     Active Substance: DOXEPIN
     Indication: Depression
     Dosage: 25 MG, OD, AT BED TIME
     Route: 048
  10. DOXEPIN [Suspect]
     Active Substance: DOXEPIN
     Indication: Affective disorder
  11. DOXEPIN [Suspect]
     Active Substance: DOXEPIN
     Indication: Depressed mood
  12. SERTRALINE [Suspect]
     Active Substance: SERTRALINE HYDROCHLORIDE
     Indication: Depression
     Dosage: UNK
     Route: 065
  13. SERTRALINE [Suspect]
     Active Substance: SERTRALINE HYDROCHLORIDE
     Indication: Depressed mood
     Dosage: 50 MG, OD, (IN THE MORNING)
     Route: 048
  14. BISOPROLOL [Suspect]
     Active Substance: BISOPROLOL
     Indication: Product used for unknown indication
     Dosage: UNK
     Route: 048
  15. MELOXICAM [Suspect]
     Active Substance: MELOXICAM
     Indication: Osteoarthritis
     Dosage: UNK (BEDTIME), TRAMADOL IN COMBINATION WITH MELOXICAM, FOR ABOUT TWO YEARS AGO
     Route: 048
  16. MELOXICAM [Suspect]
     Active Substance: MELOXICAM
     Indication: Arthralgia
     Dosage: UNK
     Route: 065
  17. ATORVASTATIN [Suspect]
     Active Substance: ATORVASTATIN
     Indication: Hypercholesterolaemia
     Dosage: UNK (BEDTIME)
     Route: 048
  18. TRAMADOL [Suspect]
     Active Substance: TRAMADOL
     Indication: Osteoarthritis
     Dosage: UNK (BEDTIME), TRAMADOL IN COMBINATION WITH MELOXICAM FOR ABOUT TWO YEARS AGO
     Route: 048
  19. TRAMADOL [Suspect]
     Active Substance: TRAMADOL
     Indication: Arthralgia
     Dosage: UNK
     Route: 065
  20. PERINDOPRIL [Suspect]
     Active Substance: PERINDOPRIL
     Indication: Product used for unknown indication
     Dosage: UNK
     Route: 048
  21. ZOLPIDEM TARTRATE [Suspect]
     Active Substance: ZOLPIDEM TARTRATE
     Indication: Depression
     Dosage: 10 MG, OD, AT BED TIME
     Route: 065
  22. ATORVASTATIN CALCIUM [Suspect]
     Active Substance: ATORVASTATIN CALCIUM
     Indication: Product used for unknown indication
     Dosage: UNK
     Route: 065
  23. BISOPROLOL FUMARATE [Suspect]
     Active Substance: BISOPROLOL FUMARATE
     Indication: Product used for unknown indication
     Dosage: UNK
     Route: 065
  24. MELOXICAM [Suspect]
     Active Substance: MELOXICAM
     Indication: Arthralgia
     Dosage: UNK
     Route: 065

REACTIONS (12)
  - Product use in unapproved indication [Unknown]
  - Impaired work ability [Recovered/Resolved]
  - Tinnitus [Recovering/Resolving]
  - Intentional product misuse [Recovering/Resolving]
  - Affective disorder [Recovering/Resolving]
  - Loss of consciousness [Recovered/Resolved]
  - Suicide attempt [Recovered/Resolved]
  - Loss of personal independence in daily activities [Recovered/Resolved]
  - Condition aggravated [Unknown]
  - Overdose [Recovered/Resolved]
  - Insomnia [Recovering/Resolving]
  - Intentional overdose [Unknown]
